FAERS Safety Report 16945554 (Version 1)
Quarter: 2019Q4

REPORT INFORMATION
  Report Type: Spontaneous
  Country: US (occurrence: US)
  Receive Date: 20191021
  Receipt Date: 20191021
  Transmission Date: 20200122
  Serious: Yes (Hospitalization)
  Sender: FDA-Public Use
  Company Number: None

PATIENT
  Sex: Female

DRUGS (7)
  1. SUTENT [Suspect]
     Active Substance: SUNITINIB MALATE
     Indication: RENAL CANCER
     Route: 048
     Dates: start: 20190927
  2. TRINTELLIX [Concomitant]
     Active Substance: VORTIOXETINE HYDROBROMIDE
  3. VITAMIN D [Concomitant]
     Active Substance: VITAMIN D NOS
  4. TRAZODONE [Concomitant]
     Active Substance: TRAZODONE HYDROCHLORIDE
  5. ESTRADIOL. [Concomitant]
     Active Substance: ESTRADIOL
  6. LORAZEPAM. [Concomitant]
     Active Substance: LORAZEPAM
  7. DIPHENHYDRAM ELX [Concomitant]

REACTIONS (8)
  - Red blood cell count decreased [None]
  - White blood cell count decreased [None]
  - Pyrexia [None]
  - Headache [None]
  - Nausea [None]
  - Seizure [None]
  - Stomatitis [None]
  - Therapy cessation [None]
